FAERS Safety Report 8237054-0 (Version None)
Quarter: 2012Q1

REPORT INFORMATION
  Report Type: 
  Country: None (occurrence: None)
  Receive Date: 20120327
  Receipt Date: 20120323
  Transmission Date: 20120608
  Serious: Yes (Death)
  Sender: FDA-Public Use
  Company Number: PHHY2012AU003501

PATIENT
  Sex: Male

DRUGS (9)
  1. ISOPTIN SR [Concomitant]
     Indication: PAIN
  2. LASIX [Concomitant]
  3. ZOLEDRONOC ACID [Suspect]
     Dosage: 5 MG, YEARLY
     Route: 042
     Dates: start: 20101221
  4. CODALS IN FORTE [Concomitant]
     Indication: PAIN
  5. GABAPENTIN [Concomitant]
     Indication: PAIN
  6. FLUTICASONE PROPIONATE/SALMETEROL [Concomitant]
  7. VENTOLIN [Concomitant]
  8. ALLOPURINOL [Concomitant]
     Route: 048
  9. PERINDOPRIL ERBUMINE [Concomitant]
     Indication: GOUT

REACTIONS (2)
  - RENAL FAILURE [None]
  - CHRONIC OBSTRUCTIVE PULMONARY DISEASE [None]
